FAERS Safety Report 14657040 (Version 2)
Quarter: 2019Q4

REPORT INFORMATION
  Report Type: Spontaneous
  Country: FR (occurrence: FR)
  Receive Date: 20180319
  Receipt Date: 20191220
  Transmission Date: 20200122
  Serious: Yes (Life-Threatening, Other)
  Sender: FDA-Public Use
  Company Number: FR-SA-2018SA066695

PATIENT
  Age: 42 Year
  Sex: Male
  Weight: 92 kg

DRUGS (12)
  1. ALPRAZOLAM. [Suspect]
     Active Substance: ALPRAZOLAM
     Dosage: UNK UNK,UNK
     Route: 048
     Dates: start: 20170608, end: 20170608
  2. ZOPICLONE [Suspect]
     Active Substance: ZOPICLONE
     Dosage: UNK UNK,UNK
     Route: 048
     Dates: start: 20170608, end: 20170608
  3. PROMETHAZINE [Suspect]
     Active Substance: PROMETHAZINE HYDROCHLORIDE
     Dosage: UNK UNK,UNK
     Route: 048
     Dates: start: 20170608, end: 20170608
  4. ARIPIPRAZOLE. [Suspect]
     Active Substance: ARIPIPRAZOLE
     Indication: SCHIZOPHRENIA
     Dosage: UNK UNK,UNK
     Route: 048
  5. OXAZEPAM. [Suspect]
     Active Substance: OXAZEPAM
     Dosage: UNK UNK,UNK
     Route: 048
     Dates: start: 20170608, end: 20170608
  6. TRIHEXYPHENIDYL HYDROCHLORIDE. [Suspect]
     Active Substance: TRIHEXYPHENIDYL HYDROCHLORIDE
     Indication: PARKINSONISM
     Dosage: UNK UNK,UNK
     Route: 048
  7. VENLAFAXINE HYDROCHLORIDE. [Suspect]
     Active Substance: VENLAFAXINE HYDROCHLORIDE
     Indication: DEPRESSION
     Dosage: UNK UNK,UNK
     Route: 048
  8. ARAVA [Suspect]
     Active Substance: LEFLUNOMIDE
     Indication: PALINDROMIC RHEUMATISM
     Dosage: UNK UNK,UNK
     Route: 048
  9. ASPIRINE [Suspect]
     Active Substance: ASPIRIN
     Dosage: UNK UNK,UNK
     Route: 048
     Dates: start: 20170608, end: 20170608
  10. TRANXENE [Suspect]
     Active Substance: CLORAZEPATE DIPOTASSIUM
     Dosage: UNK UNK,UNK
     Route: 048
  11. THERALENE [Suspect]
     Active Substance: TRIMEPRAZINE
     Indication: INSOMNIA
     Dosage: UNK UNK,UNK
     Route: 048
  12. LOXAPAC [LOXAPINE HYDROCHLORIDE] [Suspect]
     Active Substance: LOXAPINE HYDROCHLORIDE
     Indication: SCHIZOPHRENIA
     Dosage: UNK UNK,UNK
     Route: 048

REACTIONS (5)
  - Prothrombin level decreased [Recovered/Resolved]
  - Coma [Recovered/Resolved]
  - Acute respiratory distress syndrome [Recovered/Resolved]
  - Metabolic acidosis [Recovered/Resolved]
  - Pancytopenia [Recovered/Resolved]

NARRATIVE: CASE EVENT DATE: 20170608
